FAERS Safety Report 16353406 (Version 1)
Quarter: 2019Q2

REPORT INFORMATION
  Report Type: Spontaneous
  Country: US (occurrence: US)
  Receive Date: 20190524
  Receipt Date: 20190524
  Transmission Date: 20190711
  Serious: Yes (Other)
  Sender: FDA-Public Use
  Company Number: US-MYLANLABS-2019M1046370

PATIENT
  Sex: Female
  Weight: 76.2 kg

DRUGS (2)
  1. DILTIAZEM HYDROCHLORIDE TABLETS, USP [Suspect]
     Active Substance: DILTIAZEM HYDROCHLORIDE
     Indication: BLOOD PRESSURE MEASUREMENT
     Dosage: 30 MILLIGRAM
  2. DILTIAZEM HYDROCHLORIDE EXTENDED-RELEASE CAPSULES USP [Suspect]
     Active Substance: DILTIAZEM HYDROCHLORIDE
     Indication: ATRIAL FIBRILLATION
     Dosage: 60 MILLIGRAM, BID

REACTIONS (12)
  - Blood pressure abnormal [Recovering/Resolving]
  - Drug ineffective [Recovering/Resolving]
  - Expired product administered [Not Recovered/Not Resolved]
  - Off label use [Unknown]
  - Micturition disorder [Recovering/Resolving]
  - Bowel movement irregularity [Recovering/Resolving]
  - Dyspnoea [Unknown]
  - Chest pain [Unknown]
  - Nausea [Recovering/Resolving]
  - Blood pressure systolic increased [Recovered/Resolved]
  - Chills [Recovering/Resolving]
  - Weight decreased [Recovered/Resolved]
